FAERS Safety Report 4369824-3 (Version None)
Quarter: 2004Q2

REPORT INFORMATION
  Report Type: 
  Country: None (occurrence: None)
  Receive Date: 20040603
  Receipt Date: 20040526
  Transmission Date: 20050107
  Serious: Yes (Hospitalization)
  Sender: FDA-Public Use
  Company Number: GB-MERCK-0405USA01946

PATIENT
  Age: 61 Year
  Sex: Female

DRUGS (8)
  1. AMLODIPINE BESYLATE [Concomitant]
     Route: 065
  2. ASPIRIN [Concomitant]
     Route: 065
  3. ATENOLOL [Concomitant]
     Route: 065
  4. CLOPIDOGREL BISULFATE [Concomitant]
     Route: 065
  5. IBUPROFEN [Suspect]
     Route: 065
  6. PRINIVIL [Suspect]
     Indication: MYOCARDIAL INFARCTION
     Route: 048
  7. METFORMIN [Suspect]
     Indication: DIABETES MELLITUS NON-INSULIN-DEPENDENT
     Route: 065
  8. NATEGLINIDE [Concomitant]
     Indication: DIABETES MELLITUS
     Route: 065

REACTIONS (5)
  - HYPOTENSION [None]
  - LACTIC ACIDOSIS [None]
  - LIVER FUNCTION TEST ABNORMAL [None]
  - PANCREATITIS [None]
  - RENAL FAILURE ACUTE [None]
